FAERS Safety Report 10152196 (Version 1)
Quarter: 2014Q2

REPORT INFORMATION
  Report Type: Spontaneous
  Country: US (occurrence: US)
  Receive Date: 20140505
  Receipt Date: 20140505
  Transmission Date: 20141212
  Serious: Yes (Hospitalization)
  Sender: FDA-Public Use
  Company Number: US-ROXANE LABORATORIES, INC.-2014-RO-00683RO

PATIENT
  Age: 31 Year
  Sex: Female

DRUGS (2)
  1. DEXAMETHASONE [Suspect]
     Indication: HYPOPHYSITIS
     Dosage: 24 MG
     Route: 048
     Dates: start: 20131002
  2. IPILIMUMAB [Suspect]
     Indication: MALIGNANT MELANOMA
     Route: 042
     Dates: start: 20130731, end: 20130911

REACTIONS (2)
  - Agitation [Recovered/Resolved]
  - Anxiety [Recovered/Resolved]
